FAERS Safety Report 6877467-2 (Version None)
Quarter: 2010Q2

REPORT INFORMATION
  Report Type: 
  Country: None (occurrence: None)
  Receive Date: 20100616
  Receipt Date: 20100507
  Transmission Date: 20101027
  Serious: No
  Sender: FDA-Public Use
  Company Number: DSA_43124_2010

PATIENT
  Sex: Male

DRUGS (4)
  1. XENAZINE [Suspect]
     Indication: HUNTINGTON'S CHOREA
     Dosage: 25 MG BID ORAL
     Route: 048
     Dates: start: 20100302, end: 20100507
  2. SYNTHROID [Concomitant]
  3. BUSPAR [Concomitant]
  4. LEXAPRO [Concomitant]

REACTIONS (2)
  - DEPRESSION [None]
  - SOMNOLENCE [None]
